FAERS Safety Report 4658818-6 (Version None)
Quarter: 2005Q2

REPORT INFORMATION
  Report Type: 
  Country: None (occurrence: None)
  Receive Date: 20050511
  Receipt Date: 20050426
  Transmission Date: 20051028
  Serious: Yes (Hospitalization)
  Sender: FDA-Public Use
  Company Number: US-GLAXOSMITHKLINE-A0555991A

PATIENT
  Age: 54 Year
  Sex: Female
  Weight: 52.3 kg

DRUGS (5)
  1. NICODERM CQ [Suspect]
     Route: 062
     Dates: start: 20030101, end: 20030201
  2. NICORETTE (ORANGE) [Suspect]
     Route: 002
     Dates: start: 20030301
  3. ALBUTEROL [Concomitant]
     Indication: ASTHMA
     Route: 055
  4. LEXAPRO [Concomitant]
     Indication: DEPRESSION
     Dosage: 10MG PER DAY
     Route: 048
  5. LORAZEPAM [Concomitant]
     Indication: ANXIETY
     Dosage: 5MG TWICE PER DAY
     Route: 048

REACTIONS (3)
  - DRUG INEFFECTIVE [None]
  - MOUTH ULCERATION [None]
  - NICOTINE DEPENDENCE [None]
